FAERS Safety Report 8889494 (Version 1)
Quarter: 2012Q4

REPORT INFORMATION
  Report Type: 
  Country: JP (occurrence: JP)
  Receive Date: 20121107
  Receipt Date: 20121107
  Transmission Date: 20130627
  Serious: Yes (Death)
  Sender: FDA-Public Use
  Company Number: PHHY2012JP101884

PATIENT
  Age: 67 Year
  Sex: Female

DRUGS (1)
  1. PREDNISOLONE [Suspect]
     Indication: INTERSTITIAL LUNG DISEASE
     Dosage: 60 mg, UNK
     Route: 048

REACTIONS (3)
  - Respiratory failure [Fatal]
  - Interstitial lung disease [Fatal]
  - Drug ineffective [Unknown]
